FAERS Safety Report 16075628 (Version 1)
Quarter: 2019Q1

REPORT INFORMATION
  Report Type: Spontaneous
  Country: US (occurrence: US)
  Receive Date: 20190315
  Receipt Date: 20190315
  Transmission Date: 20190418
  Serious: No
  Sender: FDA-Public Use
  Company Number: US-GLAXOSMITHKLINE-US2019AMR041870

PATIENT
  Sex: Female
  Weight: 81 kg

DRUGS (2)
  1. ROBITUSSIN (GUAIFENESIN) [Suspect]
     Active Substance: GUAIFENESIN
     Indication: COUGH
     Dosage: 20 ML, UNK
     Route: 048
     Dates: start: 20181120
  2. EXCEDRIN [Suspect]
     Active Substance: ACETAMINOPHEN\ASPIRIN\CAFFEINE
     Indication: HEADACHE
     Dosage: 2 DF, UNK

REACTIONS (4)
  - Urethral disorder [Unknown]
  - Headache [Recovering/Resolving]
  - Product use issue [Unknown]
  - Product administered to patient of inappropriate age [None]
